FAERS Safety Report 6825105-7 (Version None)
Quarter: 2010Q3

REPORT INFORMATION
  Report Type: 
  Country: None (occurrence: None)
  Receive Date: 20100708
  Receipt Date: 20061204
  Transmission Date: 20110219
  Serious: No
  Sender: FDA-Public Use
  Company Number: US-PFIZER INC-2006152469

PATIENT
  Sex: Male
  Weight: 80.74 kg

DRUGS (5)
  1. CHANTIX [Suspect]
     Indication: SMOKING CESSATION THERAPY
     Dates: start: 20060101, end: 20061101
  2. ACTOS [Concomitant]
  3. ALPRAZOLAM [Concomitant]
  4. LEXAPRO [Concomitant]
  5. LIPITOR [Concomitant]

REACTIONS (2)
  - AGEUSIA [None]
  - NAUSEA [None]
